FAERS Safety Report 16823055 (Version 2)
Quarter: 2019Q3

REPORT INFORMATION
  Report Type: Report from Study
  Country: US (occurrence: US)
  Receive Date: 20190918
  Receipt Date: 20190918
  Transmission Date: 20191005
  Serious: Yes (Hospitalization)
  Sender: FDA-Public Use
  Company Number: PHHO2005US023283

PATIENT
  Age: 53 Year
  Sex: Male
  Weight: 93.42 kg

DRUGS (6)
  1. ANGIOMAX [Suspect]
     Active Substance: BIVALIRUDIN
     Dosage: 18.98 MG, (33 ML, HR)
     Route: 042
     Dates: start: 20050811, end: 20050811
  2. ANGIOMAX [Suspect]
     Active Substance: BIVALIRUDIN
     Indication: ACUTE CORONARY SYNDROME
     Dosage: 9.3 MG,  (1.9 ML) BOLUS
     Route: 040
     Dates: start: 20050811, end: 20050811
  3. AMLODIPINE [Suspect]
     Active Substance: AMLODIPINE BESYLATE
     Indication: HYPERTENSION
     Dosage: 5 MG, QD
     Route: 048
  4. ANGIOMAX [Suspect]
     Active Substance: BIVALIRUDIN
     Dosage: 46.5 MG, (9.5 ML) BOLUS
     Route: 040
     Dates: start: 20050811, end: 20050811
  5. FUROSEMIDE. [Suspect]
     Active Substance: FUROSEMIDE
     Indication: LEFT VENTRICULAR DYSFUNCTION
     Dosage: 40 MG, QD
     Route: 048
  6. ANGIOMAX [Suspect]
     Active Substance: BIVALIRUDIN
     Dosage: 23.25 MG, (5 ML, HR)
     Route: 042
     Dates: start: 20050811, end: 20050811

REACTIONS (2)
  - Bronchitis [Recovered/Resolved]
  - Hypotension [Recovered/Resolved]

NARRATIVE: CASE EVENT DATE: 20050818
